FAERS Safety Report 7274974-8 (Version None)
Quarter: 2011Q1

REPORT INFORMATION
  Report Type: 
  Country: None (occurrence: None)
  Receive Date: 20110202
  Receipt Date: 20110202
  Transmission Date: 20110831
  Serious: Yes (Life-Threatening, Hospitalization, Other)
  Sender: FDA-Public Use
  Company Number: None

PATIENT
  Age: 81 Year
  Sex: Female
  Weight: 104 kg

DRUGS (2)
  1. LOVENOX [Suspect]
     Indication: THROMBOSIS PROPHYLAXIS
     Dosage: LOVENOX 30MG QDAY SQ
     Route: 058
     Dates: start: 20101204, end: 20101216
  2. PRADAXA 150MG BID PO [Suspect]
     Indication: ATRIAL FIBRILLATION
     Dosage: PRADAXA 150MG BID PO
     Route: 048
     Dates: start: 20101129, end: 20101216

REACTIONS (6)
  - GASTROINTESTINAL HAEMORRHAGE [None]
  - HAEMORRHAGIC ANAEMIA [None]
  - RECTAL HAEMORRHAGE [None]
  - VAGINAL HAEMORRHAGE [None]
  - EPISTAXIS [None]
  - RENAL FAILURE ACUTE [None]
